FAERS Safety Report 11651327 (Version 19)
Quarter: 2022Q2

REPORT INFORMATION
  Report Type: Other
  Country: AR (occurrence: AR)
  Receive Date: 20151022
  Receipt Date: 20220530
  Transmission Date: 20220721
  Serious: Yes (Life-Threatening, Hospitalization, Disabling, Other)
  Sender: FDA-Public Use
  Company Number: AR-ROCHE-1648884

PATIENT
  Age: 43 Year
  Sex: Female

DRUGS (10)
  1. XOLAIR [Suspect]
     Active Substance: OMALIZUMAB
     Indication: Chronic spontaneous urticaria
     Route: 058
     Dates: start: 20160101
  2. XOLAIR [Suspect]
     Active Substance: OMALIZUMAB
     Indication: Urticaria chronic
     Route: 058
  3. XOLAIR [Suspect]
     Active Substance: OMALIZUMAB
     Indication: Rubber sensitivity
     Route: 058
  4. XOLAIR [Suspect]
     Active Substance: OMALIZUMAB
     Indication: Urticarial vasculitis
     Dosage: LATEX ALLERGY AND URTICARIAL VASCULITIS
     Route: 058
  5. XOLAIR [Suspect]
     Active Substance: OMALIZUMAB
     Route: 058
     Dates: start: 20160101
  6. RANITIDINE [Concomitant]
     Active Substance: RANITIDINE
     Indication: Product used for unknown indication
     Route: 065
  7. CETIRIZINE [Concomitant]
     Active Substance: CETIRIZINE HYDROCHLORIDE
     Indication: Product used for unknown indication
     Dosage: 1 DF, QD
     Route: 065
  8. EPINEPHRINE [Concomitant]
     Active Substance: EPINEPHRINE
     Indication: Product used for unknown indication
     Route: 065
  9. HYDROXYZINE HYDROCHLORIDE [Concomitant]
     Active Substance: HYDROXYZINE HYDROCHLORIDE
     Indication: Product used for unknown indication
     Dosage: 50 MG, UNK
     Route: 065
  10. PREDNISONE [Concomitant]
     Active Substance: PREDNISONE
     Indication: Product used for unknown indication
     Route: 065

REACTIONS (44)
  - Laryngeal oedema [Unknown]
  - Injection site warmth [Recovered/Resolved]
  - Rash [Unknown]
  - Flushing [Unknown]
  - Hyperventilation [Unknown]
  - Swelling [Not Recovered/Not Resolved]
  - Headache [Recovered/Resolved]
  - Dyspnoea [Not Recovered/Not Resolved]
  - Lip discolouration [Unknown]
  - Arthralgia [Not Recovered/Not Resolved]
  - Localised infection [Unknown]
  - Allergy test positive [Unknown]
  - Chest injury [Recovered/Resolved]
  - Limb injury [Recovered/Resolved]
  - Feeling abnormal [Unknown]
  - Angina pectoris [Unknown]
  - Respiratory failure [Unknown]
  - Respiratory arrest [Unknown]
  - Hypothyroidism [Unknown]
  - Cough [Recovered/Resolved]
  - Headache [Recovered/Resolved]
  - Malaise [Recovering/Resolving]
  - Syncope [Unknown]
  - Arthropod sting [Unknown]
  - Dysphonia [Not Recovered/Not Resolved]
  - Cardiac disorder [Not Recovered/Not Resolved]
  - Lung disorder [Not Recovered/Not Resolved]
  - Drug hypersensitivity [Recovered/Resolved]
  - Urticaria [Unknown]
  - Hypoxia [Unknown]
  - Amnesia [Unknown]
  - Decreased immune responsiveness [Recovered/Resolved]
  - Paranoia [Unknown]
  - Blood immunoglobulin E increased [Unknown]
  - Hypersensitivity [Not Recovered/Not Resolved]
  - Erythema [Not Recovered/Not Resolved]
  - Somnolence [Recovered/Resolved]
  - Anaphylactic shock [Unknown]
  - Vasculitis [Unknown]
  - Rubber sensitivity [Recovering/Resolving]
  - Application site pain [Recovered/Resolved]
  - Myalgia [Unknown]
  - Laryngopharyngitis [Not Recovered/Not Resolved]
  - Pyrexia [Unknown]

NARRATIVE: CASE EVENT DATE: 20170828
